FAERS Safety Report 11490193 (Version 1)
Quarter: 2015Q3

REPORT INFORMATION
  Report Type: Spontaneous
  Country: VE (occurrence: VE)
  Receive Date: 20150910
  Receipt Date: 20150910
  Transmission Date: 20151125
  Serious: Yes (Other)
  Sender: FDA-Public Use
  Company Number: PHHY2015VE109175

PATIENT
  Sex: Female
  Weight: 22 kg

DRUGS (4)
  1. OXICODAL [Concomitant]
     Active Substance: OXCARBAZEPINE
     Indication: PRODUCT USED FOR UNKNOWN INDICATION
     Route: 065
  2. TRILEPTAL [Suspect]
     Active Substance: OXCARBAZEPINE
     Indication: SEIZURE
     Dosage: 1050 MG, QD
     Route: 048
     Dates: start: 20150904
  3. OPTAMOX [Suspect]
     Active Substance: AMOXICILLIN\CLAVULANATE POTASSIUM
     Indication: PRODUCT USED FOR UNKNOWN INDICATION
     Route: 065
  4. OXCARBAZEPINE. [Suspect]
     Active Substance: OXCARBAZEPINE
     Indication: SEIZURE
     Route: 065

REACTIONS (6)
  - Eye pain [Unknown]
  - Headache [Unknown]
  - Rhinalgia [Unknown]
  - Oral pain [Unknown]
  - Muscle rigidity [Unknown]
  - Apnoea [Unknown]
